FAERS Safety Report 7753229-9 (Version None)
Quarter: 2011Q3

REPORT INFORMATION
  Report Type: 
  Country: None (occurrence: None)
  Receive Date: 20110915
  Receipt Date: 20110905
  Transmission Date: 20111222
  Serious: Yes (Disabling)
  Sender: FDA-Public Use
  Company Number: FR-CELGENEUS-056-50794-11090486

PATIENT
  Sex: Male

DRUGS (11)
  1. VIDAZA [Suspect]
     Route: 058
     Dates: start: 20100922
  2. ASPIRIN [Concomitant]
     Route: 065
  3. VIDAZA [Suspect]
     Route: 058
     Dates: start: 20100628
  4. VIDAZA [Suspect]
     Route: 058
     Dates: start: 20100823
  5. FELODIPINE [Concomitant]
     Route: 065
  6. VIDAZA [Suspect]
     Route: 058
     Dates: start: 20100727
  7. PERMIXON [Concomitant]
     Route: 065
  8. MEDIATENSYL [Concomitant]
     Route: 065
  9. ALLOPURINOL [Concomitant]
     Route: 065
  10. FOSINOPRIL SODIUM AND HYDROCHLOROTHIAZIDE [Concomitant]
     Route: 065
  11. FLUIMICIL [Concomitant]
     Route: 065

REACTIONS (1)
  - DEAFNESS [None]
